FAERS Safety Report 7570262-0 (Version None)
Quarter: 2011Q2

REPORT INFORMATION
  Report Type: 
  Country: None (occurrence: None)
  Receive Date: 20110620
  Receipt Date: 20110615
  Transmission Date: 20111010
  Serious: Yes (Death)
  Sender: FDA-Public Use
  Company Number: DSA_46929_2011

PATIENT
  Sex: Male

DRUGS (3)
  1. RISPERIDONE [Concomitant]
  2. CITALOPRAM HYDROBROMIDE [Concomitant]
  3. XENAZINE [Suspect]
     Indication: CHOREA
     Dosage: (25 MG TID ORAL)
     Route: 048
     Dates: start: 20100510

REACTIONS (1)
  - DEATH [None]
